FAERS Safety Report 10197076 (Version 2)
Quarter: 2014Q2

REPORT INFORMATION
  Report Type: Spontaneous
  Country: JP (occurrence: JP)
  Receive Date: 20140527
  Receipt Date: 20140529
  Transmission Date: 20141212
  Serious: Yes (Other)
  Sender: FDA-Public Use
  Company Number: JP-ABBVIE-14P-087-1240565-00

PATIENT
  Age: 37 Year
  Sex: Male

DRUGS (6)
  1. CLARITH TAB 200MG [Suspect]
     Indication: NASOPHARYNGITIS
     Route: 048
     Dates: start: 20130430, end: 20130504
  2. CALONAL [Suspect]
     Indication: NASOPHARYNGITIS
     Route: 048
     Dates: start: 20130430, end: 20130504
  3. MUCOSTA [Suspect]
     Indication: GASTRIC DISORDER
     Route: 048
     Dates: start: 20130430, end: 20130504
  4. DEQUALINIUM ACETATE [Suspect]
     Indication: NASOPHARYNGITIS
     Route: 048
     Dates: start: 20130430, end: 20130511
  5. ALLERMIST [Suspect]
     Indication: SEASONAL ALLERGY
     Route: 045
     Dates: start: 20130430, end: 20130504
  6. ALLEGRA [Suspect]
     Indication: SEASONAL ALLERGY
     Route: 048
     Dates: start: 20130430, end: 20130527

REACTIONS (1)
  - Erythema [Recovered/Resolved]
